FAERS Safety Report 20175498 (Version 1)
Quarter: 2021Q4

REPORT INFORMATION
  Report Type: Spontaneous
  Country: US (occurrence: US)
  Receive Date: 20211213
  Receipt Date: 20211213
  Transmission Date: 20220303
  Serious: No
  Sender: FDA-Public Use
  Company Number: US-GW PHARMA-202112USGW06048

PATIENT

DRUGS (5)
  1. EPIDIOLEX [Suspect]
     Active Substance: CANNABIDIOL
     Indication: Epilepsy with myoclonic-atonic seizures
     Dosage: UNK
     Route: 048
     Dates: start: 2019
  2. EPIDIOLEX [Suspect]
     Active Substance: CANNABIDIOL
     Dosage: 12.49 MG/KG/DAY, 340 MILLIGRAM, QD
     Route: 048
  3. EPIDIOLEX [Suspect]
     Active Substance: CANNABIDIOL
     Dosage: 11.39 MG/KG/DAY, 310 MILLIGRAM, QD
     Route: 048
  4. LAMOTRIGINE [Concomitant]
     Active Substance: LAMOTRIGINE
     Indication: Product used for unknown indication
     Dosage: UNK
     Route: 065
  5. ETHOSUXIMIDE [Concomitant]
     Active Substance: ETHOSUXIMIDE
     Indication: Product used for unknown indication
     Dosage: UNK
     Route: 065

REACTIONS (5)
  - Nausea [Not Recovered/Not Resolved]
  - Vomiting [Not Recovered/Not Resolved]
  - Product use in unapproved indication [Unknown]
  - Liquid product physical issue [Unknown]
  - Poor quality product administered [Unknown]
